FAERS Safety Report 26048628 (Version 1)
Quarter: 2025Q4

REPORT INFORMATION
  Report Type: Report from Study
  Country: CA (occurrence: CA)
  Receive Date: 20251114
  Receipt Date: 20251114
  Transmission Date: 20260117
  Serious: Yes (Hospitalization, Other)
  Sender: PHARMING GROUP
  Company Number: CA-PHARMING-PHACA2025000691

PATIENT

DRUGS (8)
  1. LENIOLISIB PHOSPHATE [Suspect]
     Active Substance: LENIOLISIB PHOSPHATE
     Indication: Activated PI3 kinase delta syndrome
     Dosage: 10 MILLIGRAM, BID
     Route: 048
     Dates: start: 202308, end: 20250507
  2. LENIOLISIB PHOSPHATE [Suspect]
     Active Substance: LENIOLISIB PHOSPHATE
     Dosage: 30 MILLIGRAM, BID
     Route: 048
     Dates: start: 202308, end: 20250507
  3. LENIOLISIB PHOSPHATE [Suspect]
     Active Substance: LENIOLISIB PHOSPHATE
     Dosage: 10 MILLIGRAM, BID
     Route: 048
     Dates: start: 20250519
  4. LENIOLISIB PHOSPHATE [Suspect]
     Active Substance: LENIOLISIB PHOSPHATE
     Dosage: 30 MILLIGRAM, BID
     Route: 048
     Dates: start: 20250519
  5. LENIOLISIB PHOSPHATE [Suspect]
     Active Substance: LENIOLISIB PHOSPHATE
     Dosage: 40 MILLIGRAM, BID
     Dates: end: 202507
  6. LENIOLISIB PHOSPHATE [Suspect]
     Active Substance: LENIOLISIB PHOSPHATE
     Dosage: 50 MILLIGRAM, BID
  7. HYDROXYCHLOROQUINE [Concomitant]
     Active Substance: HYDROXYCHLOROQUINE
     Indication: Chillblains
     Dosage: 200 MILLIGRAM, QD
     Route: 048
     Dates: start: 20250506, end: 20250508
  8. HUMAN IMMUNOGLOBULIN G [Concomitant]
     Active Substance: HUMAN IMMUNOGLOBULIN G
     Indication: Hypogammaglobulinaemia
     Dosage: 15 MILLILITER, ONCE WEEKLY
     Route: 058
     Dates: end: 20250506

REACTIONS (5)
  - Leukopenia [Recovering/Resolving]
  - Pyrexia [Recovered/Resolved]
  - Cytopenia [Recovered/Resolved]
  - Chillblains [Recovering/Resolving]
  - Weight increased [Unknown]

NARRATIVE: CASE EVENT DATE: 20250508
